FAERS Safety Report 9466856 (Version 2)
Quarter: 2013Q3

REPORT INFORMATION
  Report Type: Report from Study
  Country: CA (occurrence: CA)
  Receive Date: 20130820
  Receipt Date: 20130820
  Transmission Date: 20140515
  Serious: Yes (Other)
  Sender: FDA-Public Use
  Company Number: CA-ROCHE-1249427

PATIENT
  Age: 82 Year
  Sex: Female

DRUGS (13)
  1. RITUXAN [Suspect]
     Indication: RHEUMATOID ARTHRITIS
     Dosage: FREQUENCY:  DAY 1 AND DAY 15??11/JUN/2013 RECIEVED THE LAST DOSE PRIOR TO EVENT (DAY 1)
     Route: 042
     Dates: start: 20090514
  2. ACETAMINOPHEN [Concomitant]
     Indication: PREMEDICATION
     Route: 048
     Dates: start: 20090514
  3. BENADRYL (CANADA) [Concomitant]
     Indication: PREMEDICATION
     Route: 048
     Dates: start: 20090514
  4. METHYLPREDNISOLONE [Concomitant]
     Indication: PREMEDICATION
     Route: 042
     Dates: start: 20090514
  5. ADVAIR [Concomitant]
  6. ATROVENT [Concomitant]
  7. RAMIPRIL [Concomitant]
  8. VERAPAMIL [Concomitant]
  9. HYDROCHLOROTHIAZIDE [Concomitant]
  10. VITAMIN C [Concomitant]
  11. SULFASALAZINE [Concomitant]
  12. FOSAVANCE [Concomitant]
  13. RABEPRAZOLE [Concomitant]

REACTIONS (6)
  - Abdominal pain [Recovering/Resolving]
  - Flatulence [Unknown]
  - Renal cyst [Not Recovered/Not Resolved]
  - Gallbladder polyp [Not Recovered/Not Resolved]
  - Nausea [Recovering/Resolving]
  - Constipation [Unknown]
